FAERS Safety Report 4961856-7 (Version None)
Quarter: 2006Q2

REPORT INFORMATION
  Report Type: 
  Country: None (occurrence: None)
  Receive Date: 20060404
  Receipt Date: 20060327
  Transmission Date: 20061013
  Serious: Yes (Death, Hospitalization)
  Sender: FDA-Public Use
  Company Number: PHNU2006SI01494

PATIENT
  Sex: Male

DRUGS (2)
  1. TAXOL [Concomitant]
     Route: 065
  2. ZOMETA [Suspect]
     Indication: PROSTATE CANCER METASTATIC
     Dosage: 4 MG EVERY 3 TO 4 WEEKS
     Route: 042
     Dates: start: 20040301

REACTIONS (8)
  - CARDIAC FAILURE [None]
  - DISEASE PROGRESSION [None]
  - FASCIITIS [None]
  - OSTEONECROSIS [None]
  - PAIN IN JAW [None]
  - PROCEDURAL SITE REACTION [None]
  - SWELLING [None]
  - TOOTH EXTRACTION [None]
